FAERS Safety Report 7880732-3 (Version None)
Quarter: 2011Q4

REPORT INFORMATION
  Report Type: 
  Country: None (occurrence: None)
  Receive Date: 20111101
  Receipt Date: 20111019
  Transmission Date: 20120403
  Serious: Yes (Other)
  Sender: FDA-Public Use
  Company Number: US-ELI_LILLY_AND_COMPANY-US201105002553

PATIENT
  Sex: Male

DRUGS (5)
  1. ZYPREXA [Suspect]
     Dosage: 20 MG, EACH EVENING
     Route: 065
     Dates: start: 20101109
  2. PAXIL [Concomitant]
     Dosage: 40 MG, UNK
  3. TOPAMAX [Concomitant]
     Dosage: 100 MG, BID
  4. TRILEPTAL [Concomitant]
     Dosage: 600 MG, TID
  5. KLONOPIN [Concomitant]
     Indication: ANXIETY
     Dosage: 5 MG, TID

REACTIONS (2)
  - PROSTATE CANCER [None]
  - WEIGHT INCREASED [None]
